FAERS Safety Report 20650435 (Version 1)
Quarter: 2022Q1

REPORT INFORMATION
  Report Type: Spontaneous
  Country: RU (occurrence: None)
  Receive Date: 20220329
  Receipt Date: 20220329
  Transmission Date: 20220424
  Serious: Yes (Other)
  Sender: FDA-Public Use
  Company Number: RU-Fresenius Kabi-FK202203593

PATIENT
  Age: 5 Month
  Sex: Female

DRUGS (12)
  1. ACETAMINOPHEN [Suspect]
     Active Substance: ACETAMINOPHEN
     Indication: Respiratory tract infection
     Dosage: 60 MG/KG PER DAY
     Route: 065
  2. ACETAMINOPHEN [Suspect]
     Active Substance: ACETAMINOPHEN
     Indication: Pharyngitis
  3. ACETAMINOPHEN [Suspect]
     Active Substance: ACETAMINOPHEN
     Indication: Rash
  4. CEFTRIAXONE [Suspect]
     Active Substance: CEFTRIAXONE
     Indication: Respiratory tract infection
     Dosage: 100 MG/KG PER DAY
     Route: 065
  5. CEFTRIAXONE [Suspect]
     Active Substance: CEFTRIAXONE
     Indication: Pharyngitis
  6. CEFTRIAXONE [Suspect]
     Active Substance: CEFTRIAXONE
     Indication: Rash
  7. METAMIZOLE [Suspect]
     Active Substance: METAMIZOLE
     Indication: Respiratory tract infection
     Dosage: 30 MG/KG PER DAY
     Route: 065
  8. METAMIZOLE [Suspect]
     Active Substance: METAMIZOLE
     Indication: Pharyngitis
  9. METAMIZOLE [Suspect]
     Active Substance: METAMIZOLE
     Indication: Rash
  10. KETOPROFEN [Suspect]
     Active Substance: KETOPROFEN
     Indication: Respiratory tract infection
     Dosage: (2.0 MG/DAY). KG PER DAY)
     Route: 065
  11. KETOPROFEN [Suspect]
     Active Substance: KETOPROFEN
     Indication: Pharyngitis
  12. KETOPROFEN [Suspect]
     Active Substance: KETOPROFEN
     Indication: Rash

REACTIONS (3)
  - Drug-induced liver injury [Unknown]
  - Cyanosis [Unknown]
  - Rash [Unknown]
